FAERS Safety Report 9470054 (Version 1)
Quarter: 2013Q3

REPORT INFORMATION
  Report Type: Spontaneous
  Country: US (occurrence: None)
  Receive Date: 20130820
  Receipt Date: 20130820
  Transmission Date: 20140515
  Serious: Yes (Life-Threatening, Hospitalization)
  Sender: FDA-Public Use
  Company Number: None

PATIENT
  Age: 40 Year
  Sex: Female

DRUGS (8)
  1. ONDANSETRON [Suspect]
     Indication: NAUSEA
     Dosage: 4MG, X1, IV PUSH
     Route: 042
     Dates: start: 20130805
  2. METFORMIN [Concomitant]
  3. ALBUTEROL [Concomitant]
  4. ALBUTEROL/IPRATROPIUM [Concomitant]
  5. TRAZODONE [Concomitant]
  6. LISINOPRIL [Concomitant]
  7. TOPIRAMATE [Concomitant]
  8. BUPROPION [Concomitant]

REACTIONS (4)
  - Chest pain [None]
  - Dyspnoea [None]
  - Electrocardiogram QT prolonged [None]
  - Cardiac arrest [None]
